FAERS Safety Report 9760226 (Version 1)
Quarter: 2013Q4

REPORT INFORMATION
  Report Type: Spontaneous
  Country: US (occurrence: US)
  Receive Date: 20131216
  Receipt Date: 20131216
  Transmission Date: 20140711
  Serious: No
  Sender: FDA-Public Use
  Company Number: US-GILEAD-2010-0028330

PATIENT
  Sex: Female
  Weight: 58.06 kg

DRUGS (13)
  1. LETAIRIS [Suspect]
     Indication: PULMONARY ARTERIAL HYPERTENSION
     Route: 048
     Dates: start: 20100113
  2. RESTASIS [Concomitant]
  3. ALPHAGAN P [Concomitant]
  4. PREDNISONE [Concomitant]
  5. LIPITOR [Concomitant]
  6. DIOVAN [Concomitant]
  7. PROVENTIL [Concomitant]
  8. ADVAIR 250-50 DISKUS [Concomitant]
  9. DAILY MULTIVITAMIN [Concomitant]
  10. VITAMIN C [Concomitant]
  11. FISH OIL [Concomitant]
  12. COQ [Concomitant]
  13. CALCIUM 600 W/D [Concomitant]

REACTIONS (1)
  - Red blood cell count decreased [Unknown]
